FAERS Safety Report 16269464 (Version 1)
Quarter: 2019Q2

REPORT INFORMATION
  Report Type: Spontaneous
  Country: US (occurrence: US)
  Receive Date: 20190502
  Receipt Date: 20190502
  Transmission Date: 20190711
  Serious: Yes (Hospitalization)
  Sender: FDA-Public Use
  Company Number: None

PATIENT
  Sex: Female

DRUGS (17)
  1. ELIQUIS [Concomitant]
     Active Substance: APIXABAN
  2. MUCINEX [Concomitant]
     Active Substance: GUAIFENESIN
  3. OMEGA-3 ACIDS [Concomitant]
     Active Substance: OMEGA-3 FATTY ACIDS
  4. TACROLIMUS. [Suspect]
     Active Substance: TACROLIMUS
     Indication: RENAL TRANSPLANT
     Dosage: ?          OTHER FREQUENCY:5 MG ATAM, 4MGATPM;?
     Route: 048
     Dates: start: 20140521
  5. SODIUM BICAR [Concomitant]
  6. VALSARTAN. [Concomitant]
     Active Substance: VALSARTAN
  7. CALCITRIOL. [Concomitant]
     Active Substance: CALCITRIOL
  8. METOPROL TAR [Concomitant]
  9. PREVACID [Concomitant]
     Active Substance: LANSOPRAZOLE
  10. VITAMIN D3 [Concomitant]
     Active Substance: CHOLECALCIFEROL
  11. MAG OXIDE [Concomitant]
     Active Substance: MAGNESIUM OXIDE
  12. PRILOSEC [Concomitant]
     Active Substance: OMEPRAZOLE MAGNESIUM
  13. SMZ/TMP [Concomitant]
     Active Substance: SULFAMETHOXAZOLE\TRIMETHOPRIM
  14. MYCOPHENOLATE [Suspect]
     Active Substance: MYCOPHENOLIC ACID
     Indication: RENAL TRANSPLANT
     Route: 048
     Dates: start: 20140521
  15. GABAPENTIN. [Concomitant]
     Active Substance: GABAPENTIN
  16. TUMS [Concomitant]
     Active Substance: CALCIUM CARBONATE
  17. VITAMIN B12 [Concomitant]
     Active Substance: CYANOCOBALAMIN

REACTIONS (2)
  - Therapy cessation [None]
  - Dehydration [None]
